FAERS Safety Report 10232693 (Version 1)
Quarter: 2014Q2

REPORT INFORMATION
  Report Type: Spontaneous
  Country: US (occurrence: None)
  Receive Date: 20140610
  Receipt Date: 20140610
  Transmission Date: 20141212
  Serious: No
  Sender: FDA-Public Use
  Company Number: CC14-0471

PATIENT
  Age: 74 Year
  Sex: Female

DRUGS (1)
  1. METRONIDAZOLE [Suspect]
     Indication: ROSACEA
     Dosage: APPLY QD TO FACE
     Dates: start: 20140305, end: 20140324

REACTIONS (8)
  - Skin irritation [None]
  - Erythema [None]
  - Skin burning sensation [None]
  - Dry skin [None]
  - Drug hypersensitivity [None]
  - Swelling [None]
  - Product substitution issue [None]
  - Product formulation issue [None]
